FAERS Safety Report 20402883 (Version 2)
Quarter: 2022Q1

REPORT INFORMATION
  Report Type: Spontaneous
  Country: US (occurrence: US)
  Receive Date: 20220131
  Receipt Date: 20220201
  Transmission Date: 20220423
  Serious: No
  Sender: FDA-Public Use
  Company Number: US-ABBVIE-21K-163-4175325-00

PATIENT
  Age: 51 Year
  Sex: Male
  Weight: 80.585 kg

DRUGS (1)
  1. HUMIRA [Suspect]
     Active Substance: ADALIMUMAB
     Indication: Psoriatic arthropathy
     Route: 058

REACTIONS (8)
  - Crepitations [Unknown]
  - Somnolence [Unknown]
  - Joint range of motion decreased [Unknown]
  - Peripheral swelling [Recovering/Resolving]
  - Pain in extremity [Unknown]
  - Arthralgia [Unknown]
  - Musculoskeletal chest pain [Unknown]
  - Device issue [Unknown]

NARRATIVE: CASE EVENT DATE: 20211105
